FAERS Safety Report 21629524 (Version 1)
Quarter: 2022Q4

REPORT INFORMATION
  Report Type: Spontaneous
  Country: RO (occurrence: RO)
  Receive Date: 20221122
  Receipt Date: 20221122
  Transmission Date: 20230113
  Serious: Yes (Other)
  Sender: FDA-Public Use
  Company Number: RO-002147023-NVSC2022RO260117

PATIENT
  Age: 40 Year
  Sex: Female

DRUGS (1)
  1. METHOTREXATE [Suspect]
     Active Substance: METHOTREXATE
     Indication: Sarcoidosis
     Dosage: 20 MG, QW
     Route: 065

REACTIONS (4)
  - Sarcoidosis [Unknown]
  - Condition aggravated [Unknown]
  - Disease progression [Unknown]
  - Product use in unapproved indication [Unknown]
